FAERS Safety Report 16477903 (Version 1)
Quarter: 2019Q2

REPORT INFORMATION
  Report Type: Spontaneous
  Country: MT (occurrence: MT)
  Receive Date: 20190626
  Receipt Date: 20190626
  Transmission Date: 20190711
  Serious: Yes (Life-Threatening)
  Sender: FDA-Public Use
  Company Number: MT-ACCORD-134966

PATIENT
  Age: 6 Year
  Sex: Female
  Weight: 35 kg

DRUGS (2)
  1. CLOBAZAM. [Suspect]
     Active Substance: CLOBAZAM
     Indication: EPILEPSY
     Dates: start: 20190526, end: 20190528
  2. EPILIM EC [Concomitant]
     Active Substance: VALPROATE SODIUM
     Indication: EPILEPSY
     Dates: start: 20150101

REACTIONS (1)
  - Epilepsy [Recovered/Resolved]

NARRATIVE: CASE EVENT DATE: 20190526
